FAERS Safety Report 9702501 (Version 2)
Quarter: 2013Q4

REPORT INFORMATION
  Report Type: Spontaneous
  Country: US (occurrence: US)
  Receive Date: 20131121
  Receipt Date: 20131213
  Transmission Date: 20140711
  Serious: Yes (Death)
  Sender: FDA-Public Use
  Company Number: US-PFIZER INC-2013332703

PATIENT
  Age: 2 Year
  Sex: Female

DRUGS (4)
  1. GENOTROPIN MQ [Suspect]
     Indication: GROWTH HORMONE DEFICIENCY
     Dosage: 0.4 MG, DAILY
     Route: 058
     Dates: start: 201212, end: 20130401
  2. SYNTHROID [Concomitant]
     Indication: HYPOTHYROIDISM
     Dosage: 37.5 UG, 1X/DAY
     Dates: start: 201012, end: 201304
  3. HYDROCORTISONE [Concomitant]
     Indication: GLUCOCORTICOID DEFICIENCY
     Dosage: 1.5 MG, 3X/DAY
     Dates: start: 201102, end: 201304
  4. PHENOBARBITAL [Concomitant]
     Indication: CONVULSION
     Dosage: UNK
     Dates: start: 201106, end: 201304

REACTIONS (1)
  - Death [Fatal]
